FAERS Safety Report 6763126-3 (Version None)
Quarter: 2010Q2

REPORT INFORMATION
  Report Type: 
  Country: None (occurrence: None)
  Receive Date: 20100608
  Receipt Date: 20100608
  Transmission Date: 20101027
  Serious: Yes (Hospitalization)
  Sender: FDA-Public Use
  Company Number: None

PATIENT
  Age: 35 Year
  Sex: Female
  Weight: 77.1115 kg

DRUGS (1)
  1. LYRICA [Suspect]
     Indication: FIBROMYALGIA
     Dosage: 75 MG TWICE DAILY
     Dates: start: 20080629, end: 20091115

REACTIONS (10)
  - ARTHRALGIA [None]
  - DEPRESSION [None]
  - IMPAIRED WORK ABILITY [None]
  - LYMPHOEDEMA [None]
  - MEMORY IMPAIRMENT [None]
  - PYREXIA [None]
  - SUICIDAL IDEATION [None]
  - THINKING ABNORMAL [None]
  - VISUAL ACUITY REDUCED [None]
  - WEIGHT INCREASED [None]
